FAERS Safety Report 7251263-9 (Version None)
Quarter: 2011Q1

REPORT INFORMATION
  Report Type: 
  Country: None (occurrence: None)
  Receive Date: 20110128
  Receipt Date: 20110117
  Transmission Date: 20110831
  Serious: Yes (Hospitalization)
  Sender: FDA-Public Use
  Company Number: US-JNJCH-2011001837

PATIENT
  Sex: Female

DRUGS (1)
  1. BENADRYL ALLERGY KAPGELS [Suspect]
     Indication: SINUS CONGESTION
     Dosage: TEXT:UNKNOWN
     Route: 048

REACTIONS (3)
  - VERTIGO [None]
  - OFF LABEL USE [None]
  - SYNCOPE [None]
